FAERS Safety Report 20200861 (Version 1)
Quarter: 2021Q4

REPORT INFORMATION
  Report Type: Spontaneous
  Country: US (occurrence: None)
  Receive Date: 20211217
  Receipt Date: 20211217
  Transmission Date: 20220304
  Serious: No
  Sender: FDA-Public Use
  Company Number: None

PATIENT

DRUGS (2)
  1. TRALEMENT [Suspect]
     Active Substance: CUPRIC SULFATE\MAGNESIUM SULFATE MONOHYDRATE\SELENIOUS ACID\ZINC SULFATE HEPTAHYDRATE
     Route: 042
  2. TRALEMENT [Suspect]
     Active Substance: CUPRIC SULFATE\MAGNESIUM SULFATE MONOHYDRATE\SELENIOUS ACID\ZINC SULFATE HEPTAHYDRATE
     Route: 042

REACTIONS (2)
  - Product label confusion [None]
  - Physical product label issue [None]
